FAERS Safety Report 23783583 (Version 3)
Quarter: 2024Q3

REPORT INFORMATION
  Report Type: Report from Study
  Country: GB (occurrence: GB)
  Receive Date: 20240425
  Receipt Date: 20240921
  Transmission Date: 20241017
  Serious: Yes (Death, Hospitalization, Other)
  Sender: TAKEDA
  Company Number: GB-TAKEDA-2024TUS038577

PATIENT
  Sex: Male

DRUGS (4)
  1. VEDOLIZUMAB [Suspect]
     Active Substance: VEDOLIZUMAB
     Indication: Crohn^s disease
     Dosage: 108 MILLIGRAM, Q2WEEKS
     Route: 058
  2. VEDOLIZUMAB [Suspect]
     Active Substance: VEDOLIZUMAB
     Indication: Crohn^s disease
     Dosage: 108 MILLIGRAM, Q2WEEKS
     Route: 058
  3. VEDOLIZUMAB [Suspect]
     Active Substance: VEDOLIZUMAB
     Indication: Crohn^s disease
     Dosage: 108 MILLIGRAM, Q2WEEKS
     Route: 058
  4. VEDOLIZUMAB [Suspect]
     Active Substance: VEDOLIZUMAB
     Indication: Crohn^s disease
     Dosage: 108 MILLIGRAM, Q2WEEKS
     Route: 058

REACTIONS (8)
  - Death [Fatal]
  - Cardiac infection [Unknown]
  - Fall [Unknown]
  - Haematoma [Unknown]
  - Urinary tract infection [Unknown]
  - Pneumonia [Unknown]
  - COVID-19 [Unknown]
  - Asthenia [Unknown]
